FAERS Safety Report 6730996-4 (Version None)
Quarter: 2010Q2

REPORT INFORMATION
  Report Type: 
  Country: None (occurrence: None)
  Receive Date: 20100518
  Receipt Date: 20100513
  Transmission Date: 20101027
  Serious: No
  Sender: FDA-Public Use
  Company Number: US-CEPHALON-2010002737

PATIENT
  Sex: Male

DRUGS (2)
  1. FENTORA [Suspect]
     Indication: GASTROINTESTINAL PAIN
     Route: 002
  2. FENTANYL CITRATE [Suspect]
     Indication: GASTROINTESTINAL PAIN
     Route: 002
     Dates: start: 20020101

REACTIONS (2)
  - DRUG PRESCRIBING ERROR [None]
  - TOOTH DISORDER [None]
